FAERS Safety Report 7306528-9 (Version None)
Quarter: 2011Q1

REPORT INFORMATION
  Report Type: 
  Country: None (occurrence: None)
  Receive Date: 20110119
  Receipt Date: 20100820
  Transmission Date: 20110831
  Serious: Yes (Disabling, Other)
  Sender: FDA-Public Use
  Company Number: A-NJ2010-37954

PATIENT
  Age: 48 Year
  Sex: Female

DRUGS (1)
  1. TRACLEER [Suspect]
     Indication: PULMONARY ARTERIAL HYPERTENSION
     Dosage: 62.5 MG, BID, ORAL
     Route: 048
     Dates: start: 20100519, end: 20100619

REACTIONS (6)
  - FATIGUE [None]
  - ABDOMINAL PAIN [None]
  - DYSPNOEA [None]
  - OEDEMA [None]
  - HEADACHE [None]
  - DIZZINESS [None]
